FAERS Safety Report 15881265 (Version 5)
Quarter: 2019Q1

REPORT INFORMATION
  Report Type: Spontaneous
  Country: US (occurrence: US)
  Receive Date: 20190128
  Receipt Date: 20190304
  Transmission Date: 20190417
  Serious: Yes (Hospitalization)
  Sender: FDA-Public Use
  Company Number: US-ACTELION-A-NJ2019-184394

PATIENT
  Age: 52 Year
  Sex: Female
  Weight: 141.95 kg

DRUGS (2)
  1. TADALAFIL. [Concomitant]
     Active Substance: TADALAFIL
  2. UPTRAVI [Suspect]
     Active Substance: SELEXIPAG
     Indication: PULMONARY ARTERIAL HYPERTENSION
     Dosage: 200 MCG, BID
     Route: 048
     Dates: start: 20181223

REACTIONS (6)
  - Skin disorder [Unknown]
  - Malaise [Unknown]
  - Therapy non-responder [Unknown]
  - Diarrhoea [Unknown]
  - Product dose omission [Unknown]
  - Limb discomfort [Unknown]

NARRATIVE: CASE EVENT DATE: 201812
